FAERS Safety Report 4929320-9 (Version None)
Quarter: 2006Q1

REPORT INFORMATION
  Report Type: 
  Country: None (occurrence: None)
  Receive Date: 20060223
  Receipt Date: 20060131
  Transmission Date: 20060701
  Serious: Yes (Hospitalization)
  Sender: FDA-Public Use
  Company Number: US_0508120824

PATIENT
  Age: 38 Year
  Sex: Male
  Weight: 141.9 kg

DRUGS (5)
  1. ZYPREXA [Suspect]
     Dosage: SEE IMAGE
     Dates: start: 20010131, end: 20040901
  2. ZYPREXA [Suspect]
     Dosage: SEE IMAGE
     Dates: start: 20030509
  3. GLYBURIDE W/METFORMIN (GLIBENCLAMIDE, METFORMIN) [Concomitant]
  4. ZESTRIL /USA/ (LISINOPRIL) [Concomitant]
  5. CEPHALEXIN (CEPHALEXIN MONOHYDRATE) CAPSULE [Concomitant]

REACTIONS (21)
  - AGITATION [None]
  - ALANINE AMINOTRANSFERASE INCREASED [None]
  - ASPARTATE AMINOTRANSFERASE INCREASED [None]
  - BLOOD CREATINE PHOSPHOKINASE INCREASED [None]
  - BRUXISM [None]
  - CONFUSIONAL STATE [None]
  - DELIRIUM [None]
  - DIABETES MELLITUS NON-INSULIN-DEPENDENT [None]
  - DYSKINESIA [None]
  - ELECTROCARDIOGRAM T WAVE INVERSION [None]
  - FALL [None]
  - HYPERHIDROSIS [None]
  - HYPERTENSION [None]
  - INFECTION [None]
  - INSOMNIA [None]
  - LIVER FUNCTION TEST ABNORMAL [None]
  - MENTAL STATUS CHANGES [None]
  - MYOCARDIAL ISCHAEMIA [None]
  - NEUROLEPTIC MALIGNANT SYNDROME [None]
  - RHABDOMYOLYSIS [None]
  - TARDIVE DYSKINESIA [None]
